FAERS Safety Report 21771250 (Version 3)
Quarter: 2023Q1

REPORT INFORMATION
  Report Type: Report from Study
  Country: US (occurrence: US)
  Receive Date: 20221223
  Receipt Date: 20230322
  Transmission Date: 20230417
  Serious: Yes (Other)
  Sender: FDA-Public Use
  Company Number: US-ABBVIE-22K-163-4366900-00

PATIENT
  Age: 78 Year
  Sex: Male
  Weight: 92.532 kg

DRUGS (9)
  1. HUMIRA [Suspect]
     Active Substance: ADALIMUMAB
     Indication: Uveitis
     Dosage: CITRATE FREE?FORM STRENGTH: 40 MILLIGRAM
     Route: 058
     Dates: start: 202112
  2. HUMIRA [Suspect]
     Active Substance: ADALIMUMAB
     Indication: Psoriatic arthropathy
  3. HUMIRA [Suspect]
     Active Substance: ADALIMUMAB
     Indication: Rheumatoid arthritis
  4. HUMIRA [Suspect]
     Active Substance: ADALIMUMAB
     Indication: Psoriasis
  5. LISINOPRIL [Concomitant]
     Active Substance: LISINOPRIL
     Indication: Hypertension
  6. PFIZER-BIONTECH COVID-19 VACCINE [Suspect]
     Active Substance: TOZINAMERAN
     Indication: COVID-19 immunisation
     Dosage: TIME INTERVAL: 1 TOTAL: 1 IN ONCE
     Route: 030
  7. LINZESS [Concomitant]
     Active Substance: LINACLOTIDE
     Indication: Constipation
  8. DUTASTERIDE [Concomitant]
     Active Substance: DUTASTERIDE
     Indication: Prostatic disorder
  9. OMEPRAZOLE [Concomitant]
     Active Substance: OMEPRAZOLE
     Indication: Gastrooesophageal reflux disease

REACTIONS (12)
  - Intraocular pressure increased [Recovering/Resolving]
  - Glaucoma [Recovering/Resolving]
  - Eye colour change [Recovering/Resolving]
  - Intraocular pressure test abnormal [Recovering/Resolving]
  - Glaucoma [Recovered/Resolved]
  - Eye inflammation [Recovering/Resolving]
  - Blindness [Not Recovered/Not Resolved]
  - Visual impairment [Not Recovered/Not Resolved]
  - Spinal pain [Not Recovered/Not Resolved]
  - Psoriasis [Not Recovered/Not Resolved]
  - Intervertebral disc protrusion [Not Recovered/Not Resolved]
  - Visual impairment [Recovering/Resolving]

NARRATIVE: CASE EVENT DATE: 20220301
